FAERS Safety Report 15223063 (Version 1)
Quarter: 2018Q3

REPORT INFORMATION
  Report Type: Spontaneous
  Country: US (occurrence: US)
  Receive Date: 20180705
  Receipt Date: 20180705
  Transmission Date: 20181010
  Serious: Yes (Hospitalization, Disabling)
  Sender: FDA-Public Use
  Company Number: None

PATIENT
  Age: 82 Year
  Sex: Female
  Weight: 49.9 kg

DRUGS (7)
  1. BABY A.SA [Concomitant]
  2. PREMARIN [Concomitant]
     Active Substance: ESTROGENS, CONJUGATED
  3. AMLODIPINE [Concomitant]
     Active Substance: AMLODIPINE BESYLATE
  4. LEVAQUIN [Suspect]
     Active Substance: LEVOFLOXACIN
     Indication: PHARYNGITIS
     Route: 048
     Dates: start: 20180506, end: 20180506
  5. LISINOPRIL. [Concomitant]
     Active Substance: LISINOPRIL
  6. LEVAQUIN [Suspect]
     Active Substance: LEVOFLOXACIN
     Indication: OROPHARYNGEAL PAIN
     Route: 048
     Dates: start: 20180506, end: 20180506
  7. CENTRUM (WOMEN 50+) MULTIVITAMIN [Concomitant]

REACTIONS (7)
  - Visual impairment [None]
  - Nervous system disorder [None]
  - Memory impairment [None]
  - Bradyphrenia [None]
  - Tinnitus [None]
  - Cerebrovascular accident [None]
  - Deafness [None]

NARRATIVE: CASE EVENT DATE: 20180505
